FAERS Safety Report 7609910-5 (Version None)
Quarter: 2011Q3

REPORT INFORMATION
  Report Type: 
  Country: None (occurrence: None)
  Receive Date: 20110714
  Receipt Date: 20110706
  Transmission Date: 20111222
  Serious: Yes (Hospitalization)
  Sender: FDA-Public Use
  Company Number: ES-ABBOTT-11P-144-0836748-00

PATIENT
  Age: 35 Year
  Sex: Female

DRUGS (4)
  1. FOLITROPINE BETA [Interacting]
     Indication: IN VITRO FERTILISATION
     Route: 058
     Dates: start: 20110331, end: 20110406
  2. PROCRIN INJECTION [Suspect]
     Indication: IN VITRO FERTILISATION
     Route: 058
     Dates: end: 20101002
  3. FOLITROPINE ALFA [Interacting]
     Indication: IN VITRO FERTILISATION
     Route: 058
     Dates: start: 20110405, end: 20110410
  4. GONADOTROFIN ACORIONICA [Interacting]
     Indication: IN VITRO FERTILISATION
     Route: 058
     Dates: start: 20110410, end: 20110410

REACTIONS (5)
  - OVARIAN HYPERSTIMULATION SYNDROME [None]
  - OEDEMA PERIPHERAL [None]
  - PLEURAL EFFUSION [None]
  - ABDOMINAL DISCOMFORT [None]
  - ASCITES [None]
